FAERS Safety Report 5933616-1 (Version None)
Quarter: 2008Q4

REPORT INFORMATION
  Report Type: 
  Country: None (occurrence: None)
  Receive Date: 20081024
  Receipt Date: 20081017
  Transmission Date: 20090506
  Serious: Yes (Hospitalization)
  Sender: FDA-Public Use
  Company Number: TCI2008A05285

PATIENT
  Age: 6 Decade
  Sex: Female

DRUGS (1)
  1. ACTOS [Suspect]
     Indication: TYPE 2 DIABETES MELLITUS
     Dosage: PER ORAL
     Route: 048
     Dates: start: 20080401, end: 20080930

REACTIONS (4)
  - ASCITES [None]
  - FLUID RETENTION [None]
  - GENERALISED OEDEMA [None]
  - PLEURAL EFFUSION [None]
